FAERS Safety Report 6376986-5 (Version None)
Quarter: 2009Q3

REPORT INFORMATION
  Report Type: 
  Country: None (occurrence: None)
  Receive Date: 20090925
  Receipt Date: 20090825
  Transmission Date: 20100115
  Serious: No
  Sender: FDA-Public Use
  Company Number: US-BAYER-200931150NA

PATIENT
  Age: 60 Year
  Sex: Male

DRUGS (4)
  1. LEVITRA [Suspect]
     Indication: ERECTILE DYSFUNCTION
     Dosage: 4 TIMES A MONTH
     Route: 048
     Dates: start: 20060101
  2. LIPITOR [Concomitant]
  3. RANITIDINE [Concomitant]
  4. AMBIEN [Concomitant]

REACTIONS (1)
  - HEADACHE [None]
